FAERS Safety Report 16156676 (Version 1)
Quarter: 2019Q2

REPORT INFORMATION
  Report Type: Spontaneous
  Country: US (occurrence: US)
  Receive Date: 20190228
  Receipt Date: 20190228
  Transmission Date: 20190711
  Serious: Yes (Hospitalization)
  Sender: FDA-Public Use
  Company Number: None

PATIENT
  Age: 27 Year
  Sex: Male
  Weight: 127 kg

DRUGS (4)
  1. GEMCITABINE [Suspect]
     Active Substance: GEMCITABINE\GEMCITABINE HYDROCHLORIDE
     Indication: OSTEOSARCOMA
     Dosage: 1000 MG/M2 DAY 1 + 8 IV
     Route: 042
     Dates: start: 20190222
  2. GEMCITABINE [Suspect]
     Active Substance: GEMCITABINE\GEMCITABINE HYDROCHLORIDE
     Indication: OSTEOSARCOMA
     Dosage: 800 MG DAY 8-14; PO?
     Route: 048
  3. MULTIVITAMIN [Suspect]
     Active Substance: VITAMINS
  4. TYLENOL [Suspect]
     Active Substance: ACETAMINOPHEN

REACTIONS (3)
  - Dyspnoea [None]
  - Pain [None]
  - Productive cough [None]

NARRATIVE: CASE EVENT DATE: 20190226
